FAERS Safety Report 9438893 (Version 3)
Quarter: 2013Q4

REPORT INFORMATION
  Report Type: Report from Study
  Country: US (occurrence: US)
  Receive Date: 20130802
  Receipt Date: 20131001
  Transmission Date: 20140711
  Serious: Yes (Death, Other)
  Sender: FDA-Public Use
  Company Number: US-ALEXION PHARMACEUTICALS INC.-A201202609

PATIENT
  Age: 55 Year
  Sex: Female

DRUGS (16)
  1. SOLIRIS [Suspect]
     Indication: HAEMOLYTIC URAEMIC SYNDROME
     Dosage: UNK
     Route: 042
     Dates: start: 20121010
  2. FENTANYL [Concomitant]
     Dosage: 200 MCG, UNK
  3. MIDAZOLAM [Concomitant]
     Dosage: 2-8 MG, UNK
  4. DIPHENOXYLATE [Concomitant]
     Dosage: 5 MG, UNK
  5. ALBUTEROL SULFATE [Concomitant]
     Dosage: 2.5 MG, UNK
  6. NEXIUM [Concomitant]
     Dosage: 40 MG, UNK
  7. ZOLPIDEM [Concomitant]
     Dosage: 5 MG, UNK
  8. GLUCAGON [Concomitant]
     Dosage: 1 MG, PRN
  9. INSULIN [Concomitant]
     Dosage: UNK, PRN
  10. HEPARIN [Concomitant]
     Dosage: 2000-5000 UNITS, UNK
     Dates: end: 20121017
  11. EPOETIN ALFA [Concomitant]
     Dosage: 15000 IU, UNK
  12. ETOMIDATE [Concomitant]
     Dosage: 20 MG, UNK
  13. ATROPINE SULFATE [Concomitant]
     Dosage: 1 MG, UNK
  14. EPINEPHRINE [Concomitant]
     Dosage: 1 MG, UNK
  15. INSULIN GLARGINE [Concomitant]
     Dosage: 10 UNITS, UNK
  16. LABETALOL HCL [Concomitant]
     Dosage: 20 MG, UNK

REACTIONS (6)
  - Multi-organ failure [Fatal]
  - Renal failure [Fatal]
  - Haemolytic anaemia [Fatal]
  - Sepsis [Fatal]
  - Deep vein thrombosis [Unknown]
  - Gastrointestinal haemorrhage [Unknown]
